FAERS Safety Report 7946728-8 (Version None)
Quarter: 2011Q4

REPORT INFORMATION
  Report Type: 
  Country: None (occurrence: None)
  Receive Date: 20111129
  Receipt Date: 20111117
  Transmission Date: 20120403
  Serious: Yes (Other)
  Sender: FDA-Public Use
  Company Number: US-ELI_LILLY_AND_COMPANY-US201007000097

PATIENT
  Sex: Female
  Weight: 67.12 kg

DRUGS (20)
  1. FORTEO [Suspect]
     Indication: OSTEOPOROSIS
     Dosage: 20 UG, DAILY (1/D)
     Dates: start: 20100618
  2. FORTEO [Suspect]
     Dosage: 20 UG, DAILY (1/D)
  3. FORTEO [Suspect]
     Dosage: 20 UG, DAILY (1/D)
  4. FORTEO [Suspect]
     Dosage: 20 UG, DAILY (1/D)
  5. FORTEO [Suspect]
     Dosage: 20 UG, DAILY (1/D)
  6. CELEBREX [Concomitant]
     Dosage: 200 MG, BID
     Route: 048
  7. FORTEO [Suspect]
     Dosage: 20 UG, DAILY (1/D)
  8. FORTEO [Suspect]
     Dosage: 20 UG, QD
  9. FORTEO [Suspect]
     Dosage: 20 UG, DAILY (1/D)
  10. CALCIUM [Concomitant]
  11. FORTEO [Suspect]
     Dosage: 20 UG, QD
  12. FORTEO [Suspect]
     Dosage: 20 UG, QD
  13. FORTEO [Suspect]
     Dosage: 20 UG, DAILY (1/D)
  14. MUSCLE RELAXANTS [Concomitant]
  15. ASPIRIN [Concomitant]
     Dosage: UNK, DAILY (1/D)
     Route: 048
  16. FORTEO [Suspect]
     Dosage: 20 UG, DAILY (1/D)
  17. FORTEO [Suspect]
     Dosage: 20 UG, QD
  18. METOPROLOL TARTRATE [Concomitant]
     Indication: BLOOD PRESSURE
  19. NEXIUM [Concomitant]
     Dosage: 40 MG, BID
  20. LOVAZA [Concomitant]
     Dosage: 4000 MG, QD
     Route: 048

REACTIONS (36)
  - GAIT DISTURBANCE [None]
  - BLOOD GLUCOSE DECREASED [None]
  - FEAR [None]
  - DEVICE ISSUE [None]
  - NECK PAIN [None]
  - INJECTION SITE HAEMATOMA [None]
  - DEMENTIA [None]
  - ONYCHOCLASIS [None]
  - BONE DISORDER [None]
  - MUSCULOSKELETAL STIFFNESS [None]
  - BLOOD ALKALINE PHOSPHATASE INCREASED [None]
  - STRESS [None]
  - FALL [None]
  - INJECTION SITE HAEMORRHAGE [None]
  - SENSORY DISTURBANCE [None]
  - MEMORY IMPAIRMENT [None]
  - MUSCULAR WEAKNESS [None]
  - DIABETES MELLITUS [None]
  - SPINAL OSTEOARTHRITIS [None]
  - PAIN IN EXTREMITY [None]
  - TREMOR [None]
  - WRONG TECHNIQUE IN DRUG USAGE PROCESS [None]
  - INTERVERTEBRAL DISC DEGENERATION [None]
  - BACK DISORDER [None]
  - SOMNOLENCE [None]
  - DYSSTASIA [None]
  - PAIN [None]
  - LOSS OF CONSCIOUSNESS [None]
  - VISUAL ACUITY REDUCED [None]
  - SPONDYLOLISTHESIS [None]
  - ASPARTATE AMINOTRANSFERASE DECREASED [None]
  - FATIGUE [None]
  - BLOOD PRESSURE INCREASED [None]
  - CONSTIPATION [None]
  - ARTHRALGIA [None]
  - MUSCLE SPASMS [None]
